FAERS Safety Report 13627907 (Version 1)
Quarter: 2017Q2

REPORT INFORMATION
  Report Type: Spontaneous
  Country: US (occurrence: US)
  Receive Date: 20170607
  Receipt Date: 20170607
  Transmission Date: 20170830
  Serious: No
  Sender: FDA-Public Use
  Company Number: None

PATIENT
  Age: 25 Year
  Sex: Female
  Weight: 45.9 kg

DRUGS (4)
  1. MULTIVITAMIN [Concomitant]
     Active Substance: VITAMINS
  2. PROBIOTICS [Concomitant]
     Active Substance: PROBIOTICS NOS
  3. BIOTIN [Concomitant]
     Active Substance: BIOTIN
  4. PARAGARD T 380A [Suspect]
     Active Substance: COPPER
     Indication: CONTRACEPTION
     Dates: start: 20170602, end: 20170606

REACTIONS (12)
  - Flatulence [None]
  - Uterine pain [None]
  - Abdominal pain upper [None]
  - Back pain [None]
  - Vaginal disorder [None]
  - Muscle spasms [None]
  - Dizziness [None]
  - Constipation [None]
  - Chills [None]
  - Decreased appetite [None]
  - Pelvic pain [None]
  - Nausea [None]

NARRATIVE: CASE EVENT DATE: 20170602
